FAERS Safety Report 15831833 (Version 1)
Quarter: 2018Q4

REPORT INFORMATION
  Report Type: Spontaneous
  Country: US (occurrence: US)
  Receive Date: 20181219
  Receipt Date: 20181219
  Transmission Date: 20190205
  Serious: Yes (Hospitalization)
  Sender: FDA-Public Use
  Company Number: None

PATIENT
  Age: 54 Year
  Sex: Female

DRUGS (15)
  1. MELATONIN [Concomitant]
     Active Substance: MELATONIN
  2. BENADRYL [Concomitant]
     Active Substance: DIPHENHYDRAMINE HYDROCHLORIDE
  3. HYDROCHOLOROT [Concomitant]
  4. MIRTAZAPINE. [Concomitant]
     Active Substance: MIRTAZAPINE
  5. ALPRAZOLAM. [Concomitant]
     Active Substance: ALPRAZOLAM
  6. TARCEVA [Suspect]
     Active Substance: ERLOTINIB HYDROCHLORIDE
     Indication: CARCINOID TUMOUR
     Route: 048
     Dates: start: 20180111
  7. VITAMIN D3 [Concomitant]
     Active Substance: CHOLECALCIFEROL
  8. METOPROLOL. [Concomitant]
     Active Substance: METOPROLOL
  9. DOXYCYCL [Concomitant]
  10. OXYCODONE [Concomitant]
     Active Substance: OXYCODONE
  11. LOSARTAN. [Concomitant]
     Active Substance: LOSARTAN
  12. ZOLPIDEM [Concomitant]
     Active Substance: ZOLPIDEM\ZOLPIDEM TARTRATE
  13. FENTANYL. [Concomitant]
     Active Substance: FENTANYL
  14. NYSTATIN. [Suspect]
     Active Substance: NYSTATIN
  15. DEPHALEXIN [Concomitant]

REACTIONS (2)
  - Diarrhoea [None]
  - Skin exfoliation [None]
